FAERS Safety Report 8322827-6 (Version None)
Quarter: 2012Q2

REPORT INFORMATION
  Report Type: 
  Country: None (occurrence: None)
  Receive Date: 20120430
  Receipt Date: 20120423
  Transmission Date: 20120825
  Serious: Yes (Other)
  Sender: FDA-Public Use
  Company Number: PHHY2012JP035235

PATIENT
  Age: 29 Year
  Sex: Male

DRUGS (8)
  1. ETHAMBUTOL HYDROCHLORIDE [Suspect]
     Indication: TUBERCULOSIS
     Route: 048
  2. RIFAMPICIN [Suspect]
     Indication: TUBERCULOSIS
     Route: 048
  3. STREPTOMYCIN SULFATE [Concomitant]
  4. PREDNISOLONE [Concomitant]
     Dosage: 10 MG, QD
  5. ISONIAZID [Suspect]
     Indication: TUBERCULOSIS
     Route: 048
  6. PYRAZINAMIDE [Suspect]
     Indication: TUBERCULOSIS
     Route: 048
  7. CIPROFLOXACIN [Concomitant]
  8. PREDNISOLONE [Concomitant]
     Dosage: 60 MG, QD

REACTIONS (4)
  - DISSEMINATED TUBERCULOSIS [None]
  - TUBERCULOSIS OF CENTRAL NERVOUS SYSTEM [None]
  - PARADOXICAL DRUG REACTION [None]
  - HEADACHE [None]
